FAERS Safety Report 8273963-4 (Version None)
Quarter: 2012Q2

REPORT INFORMATION
  Report Type: 
  Country: None (occurrence: None)
  Receive Date: 20120411
  Receipt Date: 20120402
  Transmission Date: 20120825
  Serious: Yes (Other)
  Sender: FDA-Public Use
  Company Number: US-ASTRAZENECA-2012SE21689

PATIENT
  Age: 74 Year

DRUGS (11)
  1. JANTOVEN [Concomitant]
     Dosage: 7.5 MG AS DIRECTED
  2. COREG [Concomitant]
     Route: 048
  3. ASPIRIN [Concomitant]
     Route: 048
  4. FINASTERIDE [Concomitant]
     Route: 048
  5. METHOCARBAMOL [Concomitant]
  6. ALPRAZOLAM [Concomitant]
     Dosage: 0.25 MG BID AS NEEDED
     Route: 048
  7. LISINOPRIL [Suspect]
     Route: 048
  8. TORSEMIDE [Concomitant]
     Dosage: 10 MG ON MONDAY, WEDNESDAY AND FRIDAY
  9. CRESTOR [Suspect]
     Route: 048
  10. TIKOSYN [Concomitant]
     Route: 048
  11. CARVEDILOL [Concomitant]
     Route: 048

REACTIONS (10)
  - CATARACT [None]
  - AORTIC VALVE DISEASE [None]
  - HYPERTHYROIDISM [None]
  - RENAL FAILURE CHRONIC [None]
  - GASTROOESOPHAGEAL REFLUX DISEASE [None]
  - HYPERLIPIDAEMIA [None]
  - CORONARY ARTERY DISEASE [None]
  - ATRIAL FIBRILLATION [None]
  - CARDIAC FAILURE CONGESTIVE [None]
  - ESSENTIAL HYPERTENSION [None]
